FAERS Safety Report 4701587-1 (Version None)
Quarter: 2005Q2

REPORT INFORMATION
  Report Type: 
  Country: None (occurrence: None)
  Receive Date: 20050627
  Receipt Date: 20050610
  Transmission Date: 20051028
  Serious: Yes (Hospitalization)
  Sender: FDA-Public Use
  Company Number: L05-BEL-02196-01

PATIENT
  Age: 74 Year
  Sex: Female

DRUGS (12)
  1. ESCITALOPRAM OXALATE [Suspect]
     Dosage: 10 MG QD PO
     Route: 048
  2. LITHIUM [Suspect]
     Indication: BIPOLAR DISORDER
     Dosage: 250 MG TID
  3. LEVOMEPROMAZINE [Suspect]
     Dosage: 6.25 MG QD
  4. LISINOPRIL [Suspect]
     Dosage: 30 MG QD
  5. LISINOPRIL [Suspect]
     Dosage: 20 MG QD
  6. IRBESARTAN [Suspect]
     Indication: HYPERTENSION
     Dosage: 300 MG QD
  7. SPIRONOLACTONE [Suspect]
     Dosage: 50 MG QD
  8. RISPERIDONE [Suspect]
     Dosage: 0.25 MG QD
  9. FUROSEMIDE [Concomitant]
  10. REPAGLINIDE [Concomitant]
  11. METFORMIN [Concomitant]
  12. LORMETAZEPAM [Concomitant]

REACTIONS (11)
  - AGITATION [None]
  - APATHY [None]
  - BLOOD CREATININE INCREASED [None]
  - DEHYDRATION [None]
  - DRUG INTERACTION [None]
  - DYSARTHRIA [None]
  - NEUROTOXICITY [None]
  - OLIGURIA [None]
  - SOMNOLENCE [None]
  - THERAPEUTIC AGENT TOXICITY [None]
  - TREMOR [None]
